FAERS Safety Report 5848887-X (Version None)
Quarter: 2008Q3

REPORT INFORMATION
  Report Type: 
  Country: None (occurrence: None)
  Receive Date: 20080818
  Receipt Date: 20080807
  Transmission Date: 20090109
  Serious: Yes (Other)
  Sender: FDA-Public Use
  Company Number: US-JNJCH-2008021051

PATIENT

DRUGS (1)
  1. PURELL ORIGINAL [Suspect]
     Indication: ACCIDENTAL EXPOSURE
     Dosage: TEXT:UNDETERMINED ^HALF BOTTLE^ ONE TIME
     Route: 048
     Dates: start: 20080807, end: 20080807

REACTIONS (1)
  - ACCIDENTAL EXPOSURE [None]
